FAERS Safety Report 9424585 (Version 1)
Quarter: 2013Q3

REPORT INFORMATION
  Report Type: Spontaneous
  Country: US (occurrence: None)
  Receive Date: 20130726
  Receipt Date: 20130726
  Transmission Date: 20140515
  Serious: Yes (Life-Threatening)
  Sender: FDA-Public Use
  Company Number: None

PATIENT
  Age: 0 Day
  Sex: Male
  Weight: 1.09 kg

DRUGS (1)
  1. INFASURF [Suspect]
     Indication: RESPIRATORY DISTRESS
     Dosage: 3 ML X1 ETT
     Dates: start: 20130712

REACTIONS (3)
  - Obstructive airways disorder [None]
  - Oxygen saturation decreased [None]
  - Product quality issue [None]
